FAERS Safety Report 24198294 (Version 2)
Quarter: 2024Q3

REPORT INFORMATION
  Report Type: Spontaneous
  Country: US (occurrence: US)
  Receive Date: 20240812
  Receipt Date: 20240902
  Transmission Date: 20241017
  Serious: No
  Sender: ASTELLAS
  Company Number: US-ASTELLAS-2024US017620

PATIENT
  Age: 62 Year
  Sex: Female

DRUGS (2)
  1. VEOZAH [Suspect]
     Active Substance: FEZOLINETANT
     Indication: Hot flush
     Dosage: 45 MG, ONCE DAILY
     Route: 048
     Dates: start: 202406
  2. VEOZAH [Suspect]
     Active Substance: FEZOLINETANT
     Indication: Night sweats

REACTIONS (1)
  - Female orgasmic disorder [Unknown]

NARRATIVE: CASE EVENT DATE: 20240601
